FAERS Safety Report 5294676-7 (Version None)
Quarter: 2007Q2

REPORT INFORMATION
  Report Type: 
  Country: None (occurrence: None)
  Receive Date: 20070409
  Receipt Date: 20070409
  Transmission Date: 20071010
  Serious: Yes (Life-Threatening, Hospitalization, Other)
  Sender: FDA-Public Use
  Company Number: None

PATIENT
  Sex: Male
  Weight: 59 kg

DRUGS (2)
  1. DEFERASIROX [Suspect]
     Indication: SICKLE CELL ANAEMIA
     Dosage: 1250MG  DAILY
     Dates: start: 20060501
  2. HYDROXYUREA [Suspect]
     Indication: SICKLE CELL ANAEMIA
     Dosage: 1500MG  DAILY
     Dates: start: 20030501

REACTIONS (6)
  - CONVULSION [None]
  - HAEMORRHAGE INTRACRANIAL [None]
  - LOSS OF CONSCIOUSNESS [None]
  - MYDRIASIS [None]
  - PUPIL FIXED [None]
  - VOMITING [None]
